FAERS Safety Report 9631754 (Version 2)
Quarter: 2013Q4

REPORT INFORMATION
  Report Type: Spontaneous
  Country: DE (occurrence: DE)
  Receive Date: 20131018
  Receipt Date: 20131018
  Transmission Date: 20140711
  Serious: Yes (Hospitalization)
  Sender: FDA-Public Use
  Company Number: DE-BAYER-2013-120841

PATIENT
  Age: 77 Year
  Sex: Male

DRUGS (8)
  1. AVALOX [Suspect]
     Indication: LOBAR PNEUMONIA
     Dosage: 400 MG, UNK
  2. ASS [Concomitant]
     Dosage: 100 MG, QD
  3. NEXIUM [Concomitant]
     Dosage: 20 MG, QD
  4. BELOC ZOK [Concomitant]
     Dosage: 12.5 MG, QD
  5. RAMIPRIL [Concomitant]
     Dosage: 2.5 MG, QD
  6. PULMICORT [Concomitant]
     Dosage: 2 ML, TID
  7. SALBUTAMOL [Concomitant]
     Dosage: 2 PUFF(S), BID
  8. ATROVENT [Concomitant]
     Dosage: 3 PUFF(S), QID

REACTIONS (5)
  - Respiratory failure [Unknown]
  - Affective disorder [None]
  - Delirium [Unknown]
  - Productive cough [Unknown]
  - Pyrexia [Unknown]
